FAERS Safety Report 5299629-0 (Version None)
Quarter: 2007Q1

REPORT INFORMATION
  Report Type: 
  Country: None (occurrence: None)
  Receive Date: 20070201
  Receipt Date: 20061101
  Transmission Date: 20070707
  Serious: No
  Sender: FDA-Public Use
  Company Number: 2006PV024424

PATIENT
  Sex: Female

DRUGS (6)
  1. BYETTA [Suspect]
     Indication: DRUG USE FOR UNKNOWN INDICATION
  2. LANTUS [Concomitant]
  3. VITAMIN B6 [Concomitant]
  4. HUMALOG [Concomitant]
  5. HUMULIN 70/30 [Concomitant]
  6. VITAMIN E [Concomitant]

REACTIONS (6)
  - ANOREXIA [None]
  - DYSGEUSIA [None]
  - FEELING ABNORMAL [None]
  - NAUSEA [None]
  - PALLOR [None]
  - WEIGHT DECREASED [None]
